FAERS Safety Report 10273701 (Version 1)
Quarter: 2014Q2

REPORT INFORMATION
  Report Type: Spontaneous
  Country: US (occurrence: None)
  Receive Date: 20140630
  Receipt Date: 20140630
  Transmission Date: 20141212
  Serious: Yes (Hospitalization)
  Sender: FDA-Public Use
  Company Number: None

PATIENT
  Age: 47 Year
  Sex: Male
  Weight: 61.5 kg

DRUGS (1)
  1. CARBAMAZEPINE [Suspect]
     Indication: PAIN
     Route: 048
     Dates: start: 20140407, end: 20140408

REACTIONS (1)
  - Stevens-Johnson syndrome [None]
